FAERS Safety Report 14992522 (Version 2)
Quarter: 2018Q2

REPORT INFORMATION
  Report Type: Spontaneous
  Country: DE (occurrence: DE)
  Receive Date: 20180609
  Receipt Date: 20180615
  Transmission Date: 20180711
  Serious: Yes (Hospitalization)
  Sender: FDA-Public Use
  Company Number: DE-TEVA-2018-DE-903621

PATIENT
  Age: 92 Year
  Sex: Female

DRUGS (8)
  1. RAMIPRIL. [Concomitant]
     Active Substance: RAMIPRIL
     Dosage: 2-0-0-0
     Route: 065
  2. TORASEMID [Suspect]
     Active Substance: TORSEMIDE
     Dosage: 20 MILLIGRAM DAILY;
     Route: 065
  3. MARCUMAR [Concomitant]
     Active Substance: PHENPROCOUMON
     Dosage: 3 MG, NACH INR
     Route: 065
  4. SIMVASTATIN. [Concomitant]
     Active Substance: SIMVASTATIN
     Dosage: 20 MILLIGRAM DAILY;  0-0-1-0
     Route: 065
  5. TORASEMID [Suspect]
     Active Substance: TORSEMIDE
     Dosage: 2-0-0-0
     Route: 065
  6. METOPROLOL. [Concomitant]
     Active Substance: METOPROLOL
     Dosage: 1-0-0.5-0
     Route: 065
  7. HYDROCHLOROTHIAZIDE. [Suspect]
     Active Substance: HYDROCHLOROTHIAZIDE
     Dosage: 12.5 MILLIGRAM DAILY; 1-0-0-0
     Route: 048
  8. METAMIZOL [Concomitant]
     Active Substance: METAMIZOLE SODIUM
     Dosage: 40-40-40-0, TROPFEN

REACTIONS (2)
  - Dehydration [Unknown]
  - Disorientation [Unknown]
